FAERS Safety Report 12780640 (Version 1)
Quarter: 2016Q3

REPORT INFORMATION
  Report Type: Spontaneous
  Country: GB (occurrence: GB)
  Receive Date: 20160926
  Receipt Date: 20160926
  Transmission Date: 20161109
  Serious: Yes (Hospitalization)
  Sender: FDA-Public Use
  Company Number: PHHY2016GB130344

PATIENT
  Age: 5 Year
  Sex: Male

DRUGS (2)
  1. MEZZOPRAM [Suspect]
     Active Substance: OMEPRAZOLE MAGNESIUM
     Indication: PRODUCT USED FOR UNKNOWN INDICATION
     Dosage: 10 MG,
     Route: 065
  2. MEZZOPRAM [Suspect]
     Active Substance: OMEPRAZOLE MAGNESIUM
     Dosage: 10 MG,
     Route: 065

REACTIONS (2)
  - Malaise [Unknown]
  - Product colour issue [Unknown]
